FAERS Safety Report 7950563-4 (Version None)
Quarter: 2011Q4

REPORT INFORMATION
  Report Type: 
  Country: None (occurrence: None)
  Receive Date: 20111130
  Receipt Date: 20111120
  Transmission Date: 20120403
  Serious: Yes (Death)
  Sender: FDA-Public Use
  Company Number: US-RB-034673-11

PATIENT
  Age: 42 Year
  Sex: Male

DRUGS (2)
  1. SUBOXONE [Suspect]
     Indication: DRUG DEPENDENCE
     Dosage: UNKNOWN DOSING REGIMEN
     Route: 065
     Dates: end: 20110601
  2. ALPRAZOLAM [Concomitant]
     Indication: ANXIETY
     Dosage: UNKNOWN DOSING REGIMEN
     Route: 065
     Dates: end: 20110601

REACTIONS (3)
  - ARRHYTHMIA [None]
  - DRUG WITHDRAWAL SYNDROME [None]
  - TREMOR [None]
